FAERS Safety Report 6280310-6 (Version None)
Quarter: 2009Q3

REPORT INFORMATION
  Report Type: 
  Country: None (occurrence: None)
  Receive Date: 20090724
  Receipt Date: 20070712
  Transmission Date: 20100115
  Serious: Yes (Other)
  Sender: FDA-Public Use
  Company Number: US-ASTRAZENECA-2006UW11720

PATIENT
  Age: 9754 Day
  Sex: Female
  Weight: 125.2 kg

DRUGS (21)
  1. SEROQUEL [Suspect]
     Indication: BIPOLAR DISORDER
     Dosage: 25 MG TO 200 MG
     Route: 048
     Dates: start: 20010110
  2. WELLBUTRIN [Concomitant]
     Dosage: 150 MG TO 200 MG
     Route: 048
     Dates: start: 20010305
  3. EFFEXOR [Concomitant]
     Dates: start: 20010305
  4. ALBUTEROL [Concomitant]
     Dosage: 90 MCG TO 108 MCG, AS REQUIRED
     Route: 055
     Dates: start: 20020725
  5. COZAAR [Concomitant]
     Route: 048
     Dates: start: 20050216
  6. LANTUS [Concomitant]
     Dosage: 100 U/ML, 36 UNITS A DAY
     Route: 058
     Dates: start: 20050216
  7. PAXIL [Concomitant]
     Dosage: 20 MG TO 25 MG
     Route: 048
     Dates: start: 20031021
  8. ZOLOFT [Concomitant]
     Dosage: 25 MG TO 50 MG
     Route: 048
     Dates: start: 20031021
  9. HUMALOG [Concomitant]
     Dosage: SLIDING SCALE
     Dates: start: 20040127
  10. INSULIN LENTE [Concomitant]
     Dates: start: 20040101
  11. ALEVE [Concomitant]
     Dates: start: 20040101
  12. MOTRIN [Concomitant]
     Dates: start: 20031021
  13. ASPIRIN [Concomitant]
     Dates: start: 20040101
  14. DEPAKOTE [Concomitant]
     Dates: start: 20010526
  15. SONATA [Concomitant]
     Dates: start: 20010526
  16. TRILEPTAL [Concomitant]
     Dosage: 150 MG TO 300 MG
     Route: 048
     Dates: start: 20010528
  17. TRAMADOL [Concomitant]
     Dosage: 1-2 TABLET EVERY 4 TO 6 HOURS, PRN
     Route: 048
     Dates: start: 20060113
  18. HUMULIN N [Concomitant]
     Dosage: 18 UNITS IN MORNING AND 6 UNITS IN EVENING
     Route: 058
     Dates: start: 20020824
  19. HUMULIN R [Concomitant]
     Dosage: 4 UNITS IN MORNING AND 6 UNITS IN EVENING
     Route: 058
     Dates: start: 20020824
  20. GLYBURIDE [Concomitant]
     Route: 048
     Dates: start: 20010211
  21. NOVOLIN [Concomitant]
     Dosage: 100 UNITS/ML
     Dates: start: 20021111

REACTIONS (5)
  - BLOOD GLUCOSE INCREASED [None]
  - DIABETES MELLITUS [None]
  - DIABETES MELLITUS INADEQUATE CONTROL [None]
  - NEUROPATHY PERIPHERAL [None]
  - PANCREATITIS [None]
